FAERS Safety Report 16508622 (Version 1)
Quarter: 2019Q3

REPORT INFORMATION
  Report Type: Spontaneous
  Country: US (occurrence: US)
  Receive Date: 20190702
  Receipt Date: 20190702
  Transmission Date: 20191004
  Serious: No
  Sender: FDA-Public Use
  Company Number: US-ROCHE-2142804

PATIENT
  Age: 54 Year
  Sex: Female

DRUGS (1)
  1. XELODA [Suspect]
     Active Substance: CAPECITABINE
     Indication: ILL-DEFINED DISORDER
     Dosage: BID FOR 14 DAYS THEN OFF FOR 7 DAYS
     Route: 048
     Dates: start: 20180601

REACTIONS (2)
  - Muscle disorder [Unknown]
  - Headache [Unknown]

NARRATIVE: CASE EVENT DATE: 20180615
